FAERS Safety Report 11548856 (Version 1)
Quarter: 2015Q3

REPORT INFORMATION
  Report Type: Spontaneous
  Country: US (occurrence: US)
  Receive Date: 20150924
  Receipt Date: 20150924
  Transmission Date: 20151125
  Serious: No
  Sender: FDA-Public Use
  Company Number: US-INCYTE CORPORATION-2015IN002387

PATIENT
  Age: 81 Year
  Sex: Male
  Weight: 74.83 kg

DRUGS (6)
  1. JAKAFI [Suspect]
     Active Substance: RUXOLITINIB
     Indication: POLYCYTHAEMIA
     Dosage: 5 MG, BID
     Route: 048
     Dates: start: 20150430
  2. ASPIRIN. [Concomitant]
     Active Substance: ASPIRIN
  3. NATURAL TEARS [Concomitant]
     Active Substance: POLYVINYL ALCOHOL\POVIDONE
  4. PRILOSEC [Concomitant]
     Active Substance: OMEPRAZOLE MAGNESIUM
  5. MVI [Concomitant]
     Active Substance: VITAMINS
  6. HYDREA [Concomitant]
     Active Substance: HYDROXYUREA

REACTIONS (3)
  - Dysuria [Unknown]
  - Pyrexia [Unknown]
  - Dizziness [Unknown]
